FAERS Safety Report 13781184 (Version 3)
Quarter: 2018Q2

REPORT INFORMATION
  Report Type: Spontaneous
  Country: IT (occurrence: IT)
  Receive Date: 20170724
  Receipt Date: 20180516
  Transmission Date: 20180711
  Serious: Yes (Hospitalization, Other)
  Sender: FDA-Public Use
  Company Number: IT-AUROBINDO-AUR-APL-2017-36814

PATIENT
  Age: 50 Year
  Sex: Male

DRUGS (8)
  1. LYRICA [Suspect]
     Active Substance: PREGABALIN
     Indication: SUICIDAL IDEATION
     Dosage: 28 DF, QD
     Route: 048
     Dates: start: 20160521, end: 20160521
  2. ASPIRINETTA [Concomitant]
     Active Substance: ASPIRIN
     Indication: PRODUCT USED FOR UNKNOWN INDICATION
     Dosage: UNK
     Route: 065
  3. LASIX [Suspect]
     Active Substance: FUROSEMIDE
     Indication: SUICIDAL IDEATION
     Dosage: 30 DF, TOTAL VIALS
     Route: 048
     Dates: start: 20160521, end: 20160521
  4. BISOPROLOL [Suspect]
     Active Substance: BISOPROLOL
     Indication: SUICIDAL IDEATION
     Dosage: 60 DF,
     Route: 048
     Dates: start: 20160521
  5. ASPIRINETTA [Concomitant]
     Active Substance: ASPIRIN
     Dosage: UNK ()
     Route: 065
  6. CYMBALTA [Concomitant]
     Active Substance: DULOXETINE HYDROCHLORIDE
     Indication: PRODUCT USED FOR UNKNOWN INDICATION
     Dosage: UNK
     Route: 065
  7. ASPIRINETTA [Concomitant]
     Active Substance: ASPIRIN
     Dosage: 100 MILLIGRAM
     Route: 065
  8. BISOPROLOL [Suspect]
     Active Substance: BISOPROLOL
     Dosage: 60 DF, QD
     Route: 048
     Dates: start: 20160521, end: 20160521

REACTIONS (4)
  - Drug abuse [Recovering/Resolving]
  - Malaise [Recovering/Resolving]
  - Suicide attempt [Recovering/Resolving]
  - Muscle spasms [Recovering/Resolving]

NARRATIVE: CASE EVENT DATE: 20160521
